FAERS Safety Report 4491443-9 (Version None)
Quarter: 2004Q3

REPORT INFORMATION
  Report Type: 
  Country: None (occurrence: None)
  Receive Date: 20040921
  Receipt Date: 20031017
  Transmission Date: 20050211
  Serious: Yes (Death, Hospitalization)
  Sender: FDA-Public Use
  Company Number: 008-20785-03100452

PATIENT
  Age: 62 Year
  Sex: Female

DRUGS (2)
  1. THALOMID [Suspect]
     Indication: MULTIPLE MYELOMA
     Dosage: 400 MG, DAILY, ORAL
     Route: 048
     Dates: end: 20031010
  2. CELECOXIB [Suspect]
     Indication: MULTIPLE MYELOMA
     Dosage: 800 MG, ORAL
     Route: 048
     Dates: end: 20030929

REACTIONS (3)
  - DEATH [None]
  - SOFT TISSUE DISORDER [None]
  - STRIDOR [None]
